FAERS Safety Report 13894701 (Version 1)
Quarter: 2017Q3

REPORT INFORMATION
  Report Type: Spontaneous
  Country: US (occurrence: US)
  Receive Date: 20170817
  Receipt Date: 20170817
  Transmission Date: 20171127
  Serious: Yes (Other)
  Sender: FDA-Public Use
  Company Number: None

PATIENT
  Age: 60 Year
  Sex: Male
  Weight: 123.75 kg

DRUGS (7)
  1. LAMOTRIGRINE [Suspect]
     Active Substance: LAMOTRIGINE
  2. TYLENOL [Concomitant]
     Active Substance: ACETAMINOPHEN
  3. LISINOPRIL. [Concomitant]
     Active Substance: LISINOPRIL
  4. BENZOCAINE. [Concomitant]
     Active Substance: BENZOCAINE
  5. NORVASC [Concomitant]
     Active Substance: AMLODIPINE BESYLATE
  6. SUBOXONE [Concomitant]
     Active Substance: BUPRENORPHINE HYDROCHLORIDE\NALOXONE HYDROCHLORIDE
  7. IBUPROFEN. [Concomitant]
     Active Substance: IBUPROFEN

REACTIONS (3)
  - Tongue ulceration [None]
  - Glossodynia [None]
  - Therapy change [None]

NARRATIVE: CASE EVENT DATE: 20170724
